FAERS Safety Report 8120551-6 (Version None)
Quarter: 2012Q1

REPORT INFORMATION
  Report Type: 
  Country: None (occurrence: None)
  Receive Date: 20120207
  Receipt Date: 20120202
  Transmission Date: 20120608
  Serious: Yes (Other)
  Sender: FDA-Public Use
  Company Number: US-PFIZER INC-2012029235

PATIENT
  Sex: Female
  Weight: 96 kg

DRUGS (7)
  1. IBUPROFEN [Suspect]
     Indication: FIBROMYALGIA
     Dosage: 800 MG, DAILY
     Route: 048
  2. CYMBALTA [Concomitant]
     Indication: DEPRESSION
     Dosage: 60 MG, 2X/DAY
  3. CYMBALTA [Concomitant]
     Indication: MYALGIA
  4. NAPROXEN (ALEVE) [Suspect]
     Indication: FIBROMYALGIA
     Dosage: UNK
  5. LYRICA [Suspect]
     Indication: FIBROMYALGIA
     Dosage: 150 MG, 2X/DAY
     Dates: end: 20111201
  6. ACETAMINOPHEN [Suspect]
     Indication: FIBROMYALGIA
     Dosage: UNK
  7. DIVALPROEX SODIUM [Concomitant]
     Indication: BIPOLAR DISORDER
     Dosage: 30 MG, DAILY

REACTIONS (6)
  - WEIGHT INCREASED [None]
  - FIBROMYALGIA [None]
  - INSOMNIA [None]
  - INCREASED APPETITE [None]
  - SUICIDE ATTEMPT [None]
  - DRUG INEFFECTIVE [None]
